FAERS Safety Report 17559018 (Version 1)
Quarter: 2020Q1

REPORT INFORMATION
  Report Type: Spontaneous
  Country: GB (occurrence: GB)
  Receive Date: 20200319
  Receipt Date: 20200319
  Transmission Date: 20200409
  Serious: Yes (Other)
  Sender: FDA-Public Use
  Company Number: GB-ADVANZ PHARMA-E2B_00018871

PATIENT

DRUGS (2)
  1. PREDNISOLONE. [Suspect]
     Active Substance: PREDNISOLONE
     Dosage: 5 DAY COURSE; GASTRO-RESISTANT TABLET
  2. VENTOLIN [Concomitant]
     Active Substance: ALBUTEROL SULFATE
     Dosage: 100 UG, 1 TO 2 PUFFS UP TO FOUR TIMES DAILY
     Route: 055
     Dates: start: 20190107

REACTIONS (2)
  - Suicidal ideation [Recovered/Resolved]
  - Depression suicidal [Recovered/Resolved]
